FAERS Safety Report 21706212 (Version 1)
Quarter: 2022Q4

REPORT INFORMATION
  Report Type: Spontaneous
  Country: US (occurrence: None)
  Receive Date: 20221208
  Receipt Date: 20221208
  Transmission Date: 20230113
  Serious: Yes (Life-Threatening, Hospitalization, Other)
  Sender: FDA-Public Use
  Company Number: None

PATIENT
  Sex: Female

DRUGS (1)
  1. CAPECITABINE [Suspect]
     Active Substance: CAPECITABINE
     Dosage: FREQUENCY : TWICE A DAY;?
     Route: 048

REACTIONS (9)
  - Therapeutic product effect increased [None]
  - Psychotic disorder [None]
  - Brief resolved unexplained event [None]
  - Retching [None]
  - Decreased appetite [None]
  - Parosmia [None]
  - Nausea [None]
  - Feeling cold [None]
  - Pain [None]
